FAERS Safety Report 5072655-2 (Version None)
Quarter: 2006Q3

REPORT INFORMATION
  Report Type: 
  Country: None (occurrence: None)
  Receive Date: 20060807
  Receipt Date: 20060803
  Transmission Date: 20061208
  Serious: Yes (Death)
  Sender: FDA-Public Use
  Company Number: JP-JPN-A200602964

PATIENT
  Age: 57 Year
  Sex: Male

DRUGS (2)
  1. PAXIL [Suspect]
     Indication: DEPRESSION
     Dosage: 10MG PER DAY
     Route: 048
     Dates: start: 20060701, end: 20060701
  2. GRANDAXIN [Concomitant]
     Route: 048

REACTIONS (1)
  - COMPLETED SUICIDE [None]
